FAERS Safety Report 12929345 (Version 1)
Quarter: 2016Q4

REPORT INFORMATION
  Report Type: Spontaneous
  Country: US (occurrence: US)
  Receive Date: 20161110
  Receipt Date: 20161110
  Transmission Date: 20170207
  Serious: Yes (Other)
  Sender: FDA-Public Use
  Company Number: US-PURDUE PHARMA-USA-2016-0134667

PATIENT
  Age: 67 Year
  Sex: Female

DRUGS (2)
  1. SENNOSIDES. [Suspect]
     Active Substance: SENNOSIDES
     Dosage: 15 TABLET, PM
     Route: 048
  2. SENNOSIDES. [Suspect]
     Active Substance: SENNOSIDES
     Indication: COLONOSCOPY
     Dosage: 15 TABLET, AM
     Route: 048

REACTIONS (5)
  - Haematochezia [Recovered/Resolved]
  - Abdominal pain [Recovered/Resolved]
  - Adenoma benign [Recovered/Resolved]
  - Colitis ischaemic [Recovered/Resolved]
  - Dizziness [Recovered/Resolved]
